FAERS Safety Report 10520531 (Version 3)
Quarter: 2014Q4

REPORT INFORMATION
  Report Type: Spontaneous
  Country: TH (occurrence: TH)
  Receive Date: 20141015
  Receipt Date: 20141105
  Transmission Date: 20150528
  Serious: Yes (Other)
  Sender: FDA-Public Use
  Company Number: TH-PFIZER INC-2014277974

PATIENT
  Age: 60 Year
  Sex: Male

DRUGS (3)
  1. TYGACIL [Suspect]
     Active Substance: TIGECYCLINE
     Indication: ACINETOBACTER INFECTION
  2. TYGACIL [Suspect]
     Active Substance: TIGECYCLINE
     Indication: STAPHYLOCOCCAL INFECTION
     Dosage: 50 MG, 2X/DAY (EVERY 12 HOURS)
     Route: 041
     Dates: start: 201409, end: 201410
  3. SIMVASTATIN. [Suspect]
     Active Substance: SIMVASTATIN
     Indication: ISCHAEMIC STROKE
     Dosage: UNK

REACTIONS (1)
  - Rhabdomyolysis [Recovered/Resolved]
